FAERS Safety Report 10473703 (Version 1)
Quarter: 2014Q3

REPORT INFORMATION
  Report Type: Spontaneous
  Country: NL (occurrence: NL)
  Receive Date: 20140924
  Receipt Date: 20140924
  Transmission Date: 20150326
  Serious: Yes (Life-Threatening, Hospitalization)
  Sender: FDA-Public Use
  Company Number: NL-BAYER-2014-137421

PATIENT
  Age: 56 Year
  Sex: Male

DRUGS (9)
  1. CIPROFLOXACIN. [Suspect]
     Active Substance: CIPROFLOXACIN
     Indication: Q FEVER
     Dosage: UNK
  2. MOXIFLOXACIN ORAL [Suspect]
     Active Substance: MOXIFLOXACIN
     Indication: Q FEVER
     Dosage: 400 MG, TID
     Route: 048
     Dates: start: 2009
  3. PLAQUENIL [Concomitant]
     Active Substance: HYDROXYCHLOROQUINE SULFATE
     Indication: Q FEVER
     Dosage: 200 MG, TID
  4. PENICILLIN NOS [Concomitant]
     Active Substance: PENICILLIN
     Indication: EVIDENCE BASED TREATMENT
     Dosage: 600000 IU/DAY
     Dates: start: 2009
  5. DOXYCYCLINE. [Concomitant]
     Active Substance: DOXYCYCLINE
     Indication: Q FEVER
  6. AMOXICILLIN W/CLAVULANIC ACID [Concomitant]
     Active Substance: AMOXICILLIN\CLAVULANIC ACID
     Indication: LOBAR PNEUMONIA
     Dosage: UNK UNK, TID
  7. CIPROFLOXACIN. [Suspect]
     Active Substance: CIPROFLOXACIN
     Indication: EVIDENCE BASED TREATMENT
     Dosage: 500 MG, BID
     Route: 048
     Dates: start: 2009
  8. CLADRIBINE. [Concomitant]
     Active Substance: CLADRIBINE
     Indication: HAIRY CELL LEUKAEMIA
     Dosage: 0.15 MG/KG, QD
  9. CLADRIBINE. [Concomitant]
     Active Substance: CLADRIBINE
     Indication: HAIRY CELL LEUKAEMIA
     Dosage: UNK

REACTIONS (7)
  - Respiratory failure [Recovered/Resolved]
  - Renal tubular necrosis [Recovered/Resolved]
  - Condition aggravated [Recovered/Resolved]
  - Hepatotoxicity [None]
  - Renal failure acute [Recovered/Resolved]
  - Off label use [None]
  - Therapeutic response decreased [None]

NARRATIVE: CASE EVENT DATE: 2009
